FAERS Safety Report 9573219 (Version 2)
Quarter: 2013Q4

REPORT INFORMATION
  Report Type: Spontaneous
  Country: US (occurrence: US)
  Receive Date: 20131001
  Receipt Date: 20131001
  Transmission Date: 20140711
  Serious: Yes (Other)
  Sender: FDA-Public Use
  Company Number: US-NAPPMUNDI-USA-2012-0082102

PATIENT
  Age: 52 Year
  Sex: Female

DRUGS (1)
  1. BUTRANS [Suspect]
     Indication: FIBROMYALGIA
     Dosage: 5 MCG/HR, UNK
     Route: 062
     Dates: start: 20120110, end: 20120125

REACTIONS (5)
  - Pharyngeal oedema [Unknown]
  - Stomatitis [Recovered/Resolved]
  - Local swelling [Recovered/Resolved]
  - Rash [Unknown]
  - Nausea [Recovered/Resolved]
